FAERS Safety Report 16090936 (Version 1)
Quarter: 2019Q1

REPORT INFORMATION
  Report Type: Spontaneous
  Country: US (occurrence: US)
  Receive Date: 20190319
  Receipt Date: 20190319
  Transmission Date: 20190418
  Serious: No
  Sender: FDA-Public Use
  Company Number: US-LUNDBECK-DKLU2062121

PATIENT
  Sex: Male

DRUGS (1)
  1. NORTHERA [Suspect]
     Active Substance: DROXIDOPA
     Indication: DEMENTIA WITH LEWY BODIES
     Route: 048
     Dates: start: 20180818

REACTIONS (4)
  - Gait disturbance [Unknown]
  - Dysstasia [Unknown]
  - Product dose omission [Unknown]
  - Fall [Unknown]
